FAERS Safety Report 19841158 (Version 1)
Quarter: 2021Q3

REPORT INFORMATION
  Report Type: Other
  Country: US (occurrence: US)
  Receive Date: 20210916
  Receipt Date: 20210916
  Transmission Date: 20211014
  Serious: No
  Sender: FDA-Public Use
  Company Number: US-LEADIANT BIOSCIENCES INC-2021STPI000055

PATIENT
  Age: 36 Year
  Sex: Male

DRUGS (21)
  1. MATULANE [Suspect]
     Active Substance: PROCARBAZINE HYDROCHLORIDE
     Indication: BRAIN CANCER METASTATIC
     Dosage: 50 MILLIGRAM, QD 3 CAPSULES ON DAYS 8 TO 21 OF EACH 42 DAY CYCLE
     Route: 048
     Dates: start: 20200901
  2. IBUPROFEN. [Concomitant]
     Active Substance: IBUPROFEN
  3. MELATONIN [Concomitant]
     Active Substance: MELATONIN
  4. DEPAKOTE [Concomitant]
     Active Substance: DIVALPROEX SODIUM
  5. DULOXETINE DR [Concomitant]
     Active Substance: DULOXETINE
  6. MELOXICAM. [Concomitant]
     Active Substance: MELOXICAM
  7. REMERON [Concomitant]
     Active Substance: MIRTAZAPINE
  8. MORPHINE SULFATE. [Concomitant]
     Active Substance: MORPHINE SULFATE
  9. LORAZEPAM. [Concomitant]
     Active Substance: LORAZEPAM
  10. PROCHLORPERAZINE. [Concomitant]
     Active Substance: PROCHLORPERAZINE
  11. VIMPAT [Concomitant]
     Active Substance: LACOSAMIDE
  12. VITAMIN E BIOAKTIV KOMPLEX [Concomitant]
  13. CYCLOBENZAPRINE. [Concomitant]
     Active Substance: CYCLOBENZAPRINE
  14. CALCIUM [Concomitant]
     Active Substance: CALCIUM
  15. BUSPIRONE [Concomitant]
     Active Substance: BUSPIRONE HYDROCHLORIDE
  16. KEPPRA [Concomitant]
     Active Substance: LEVETIRACETAM
  17. GABAPENTIN. [Concomitant]
     Active Substance: GABAPENTIN
  18. OMEPRAZOLE. [Concomitant]
     Active Substance: OMEPRAZOLE
  19. ZOFRAN [Concomitant]
     Active Substance: ONDANSETRON HYDROCHLORIDE
  20. ALBUTEROL HFA [Concomitant]
     Active Substance: ALBUTEROL SULFATE
  21. LOMUSTINE. [Concomitant]
     Active Substance: LOMUSTINE

REACTIONS (2)
  - Headache [Not Recovered/Not Resolved]
  - Decreased appetite [Not Recovered/Not Resolved]

NARRATIVE: CASE EVENT DATE: 20201001
